FAERS Safety Report 6750215-2 (Version None)
Quarter: 2010Q2

REPORT INFORMATION
  Report Type: 
  Country: None (occurrence: None)
  Receive Date: 20100601
  Receipt Date: 20100519
  Transmission Date: 20101027
  Serious: Yes (Death, Life-Threatening, Other)
  Sender: FDA-Public Use
  Company Number: JP-PFIZER INC-2010050188

PATIENT
  Age: 51 Day
  Sex: Male
  Weight: 1.1 kg

DRUGS (2)
  1. ZYVOX [Suspect]
     Indication: MENINGITIS BACTERIAL
     Dosage: 15 MG, 3X/DAY
     Route: 042
     Dates: start: 20100414
  2. VANCOMYCIN [Concomitant]
     Indication: MENINGITIS BACTERIAL
     Dosage: 10 MG, 3X/DAY
     Route: 042
     Dates: start: 20100405, end: 20100430

REACTIONS (2)
  - HEPATIC FAILURE [None]
  - PLATELET COUNT DECREASED [None]
